FAERS Safety Report 5752123-2 (Version None)
Quarter: 2008Q2

REPORT INFORMATION
  Report Type: 
  Country: None (occurrence: None)
  Receive Date: 20080529
  Receipt Date: 20070517
  Transmission Date: 20081010
  Serious: No
  Sender: FDA-Public Use
  Company Number: US-BAUSCH-2007BL001626

PATIENT
  Age: 68 Year
  Sex: Female

DRUGS (4)
  1. BRIMONIDINE TARTRATE [Suspect]
     Indication: INTRAOCULAR PRESSURE INCREASED
     Route: 047
     Dates: start: 20070405
  2. TOPRAL [Concomitant]
  3. DRY EYES LUBRICANT EYE DROPS [Concomitant]
  4. ^OTHER UNSPECIFIED MEDICATIONS^ [Concomitant]

REACTIONS (3)
  - BURNING SENSATION [None]
  - DRY MOUTH [None]
  - NASAL DRYNESS [None]
